FAERS Safety Report 5047888-1 (Version None)
Quarter: 2006Q3

REPORT INFORMATION
  Report Type: 
  Country: None (occurrence: None)
  Receive Date: 20060711
  Receipt Date: 20060228
  Transmission Date: 20061208
  Serious: Yes (Other)
  Sender: FDA-Public Use
  Company Number: US-GLAXOSMITHKLINE-A0595530A

PATIENT
  Age: 74 Year
  Sex: Female

DRUGS (5)
  1. FLOVENT [Suspect]
     Indication: ASTHMA
     Route: 055
     Dates: start: 20011101
  2. FLOVENT [Suspect]
     Route: 055
     Dates: start: 20050101
  3. THEOPHYLLINE [Concomitant]
  4. ACIPHEX [Concomitant]
  5. BLOOD PRESSURE MEDICINES [Concomitant]

REACTIONS (9)
  - BLINDNESS [None]
  - CATARACT [None]
  - CUSHINGOID [None]
  - DRUG INEFFECTIVE [None]
  - DYSPHONIA [None]
  - GASTROINTESTINAL DISORDER [None]
  - GOITRE [None]
  - PHARYNGOLARYNGEAL PAIN [None]
  - WEIGHT INCREASED [None]
